FAERS Safety Report 10601017 (Version 1)
Quarter: 2014Q4

REPORT INFORMATION
  Report Type: Report from Study
  Country: US (occurrence: US)
  Receive Date: 20141124
  Receipt Date: 20141124
  Transmission Date: 20150529
  Serious: Yes (Hospitalization)
  Sender: FDA-Public Use
  Company Number: PHEH2014US022801

PATIENT
  Sex: Female
  Weight: 74.83 kg

DRUGS (9)
  1. TOBI [Suspect]
     Active Substance: TOBRAMYCIN
     Indication: CYSTIC FIBROSIS
     Dosage: 300 MG/5 ML, BID
     Route: 055
     Dates: start: 2008, end: 2013
  2. TOBI [Suspect]
     Active Substance: TOBRAMYCIN
     Indication: WHEEZING
  3. ZOSYN [Suspect]
     Active Substance: PIPERACILLIN SODIUM\TAZOBACTAM SODIUM
     Indication: CONDITION AGGRAVATED
  4. VANCOMYCIN [Suspect]
     Active Substance: VANCOMYCIN
     Indication: CYSTIC FIBROSIS
     Route: 042
  5. VANCOMYCIN [Suspect]
     Active Substance: VANCOMYCIN
     Indication: STAPHYLOCOCCAL INFECTION
  6. ZOSYN [Suspect]
     Active Substance: PIPERACILLIN SODIUM\TAZOBACTAM SODIUM
     Indication: STAPHYLOCOCCAL INFECTION
  7. VANCOMYCIN [Suspect]
     Active Substance: VANCOMYCIN
     Indication: CONDITION AGGRAVATED
  8. TOBI [Suspect]
     Active Substance: TOBRAMYCIN
     Indication: LUNG DISORDER
  9. ZOSYN [Suspect]
     Active Substance: PIPERACILLIN SODIUM\TAZOBACTAM SODIUM
     Indication: CYSTIC FIBROSIS
     Route: 042

REACTIONS (1)
  - Renal failure [Recovered/Resolved]
